FAERS Safety Report 5088175-5 (Version None)
Quarter: 2006Q3

REPORT INFORMATION
  Report Type: 
  Country: None (occurrence: None)
  Receive Date: 20060818
  Receipt Date: 20060809
  Transmission Date: 20061208
  Serious: Yes (Other)
  Sender: FDA-Public Use
  Company Number: HQWYE300210AUG06

PATIENT
  Age: 47 Year
  Sex: Male

DRUGS (10)
  1. EFFEXOR XR [Suspect]
     Indication: ANXIETY
     Dosage: 225 MG, ORAL; SEE IMAGE
     Route: 048
     Dates: start: 20050101, end: 20060101
  2. EFFEXOR XR [Suspect]
     Indication: DEPRESSION
     Dosage: 225 MG, ORAL; SEE IMAGE
     Route: 048
     Dates: start: 20050101, end: 20060101
  3. EFFEXOR XR [Suspect]
     Indication: ANXIETY
     Dosage: 225 MG, ORAL; SEE IMAGE
     Route: 048
     Dates: start: 20060101, end: 20060801
  4. EFFEXOR XR [Suspect]
     Indication: DEPRESSION
     Dosage: 225 MG, ORAL; SEE IMAGE
     Route: 048
     Dates: start: 20060101, end: 20060801
  5. EFFEXOR XR [Suspect]
     Indication: ANXIETY
     Dosage: 225 MG, ORAL; SEE IMAGE
     Route: 048
     Dates: start: 20060801, end: 20060801
  6. EFFEXOR XR [Suspect]
     Indication: DEPRESSION
     Dosage: 225 MG, ORAL; SEE IMAGE
     Route: 048
     Dates: start: 20060801, end: 20060801
  7. EFFEXOR XR [Suspect]
     Indication: ANXIETY
     Dosage: 225 MG, ORAL; SEE IMAGE
     Route: 048
     Dates: start: 20060801
  8. EFFEXOR XR [Suspect]
     Indication: DEPRESSION
     Dosage: 225 MG, ORAL; SEE IMAGE
     Route: 048
     Dates: start: 20060801
  9. TRAZODONE HCL [Concomitant]
  10. KLONOPIN [Concomitant]

REACTIONS (9)
  - CONDITION AGGRAVATED [None]
  - DEPRESSION [None]
  - DRUG EFFECT DECREASED [None]
  - DRUG WITHDRAWAL SYNDROME [None]
  - INCORRECT DOSE ADMINISTERED [None]
  - MOOD SWINGS [None]
  - PARAESTHESIA [None]
  - SUICIDAL IDEATION [None]
  - TREATMENT NONCOMPLIANCE [None]
